FAERS Safety Report 5330295-1 (Version None)
Quarter: 2007Q2

REPORT INFORMATION
  Report Type: 
  Country: None (occurrence: None)
  Receive Date: 20070521
  Receipt Date: 20070510
  Transmission Date: 20071010
  Serious: Yes (Hospitalization, Disabling, Other)
  Sender: FDA-Public Use
  Company Number: HQWYE127510MAY07

PATIENT
  Sex: Female

DRUGS (6)
  1. CORDARONE [Suspect]
     Indication: ARRHYTHMIA
     Route: 048
     Dates: start: 20060325, end: 20070108
  2. L-THYROXIN [Concomitant]
     Dosage: 50 MCG, FREQUENCY UNSPECIFIED
     Route: 048
  3. BLOPRESS [Concomitant]
     Indication: HYPERTENSION
     Dosage: 16 MG, FREQUENCY UNSPECIFIED
     Route: 048
  4. ASPIRIN [Concomitant]
     Route: 048
  5. METOPROLOL SUCCINATE [Concomitant]
     Route: 048
  6. NORVASC [Concomitant]
     Indication: HYPERTENSION
     Route: 048

REACTIONS (10)
  - ABDOMINAL DISCOMFORT [None]
  - AGEUSIA [None]
  - ANOSMIA [None]
  - CHEST DISCOMFORT [None]
  - CIRCULATORY COLLAPSE [None]
  - DIZZINESS [None]
  - GLOSSITIS [None]
  - NAUSEA [None]
  - SKIN HAEMORRHAGE [None]
  - SWOLLEN TONGUE [None]
